FAERS Safety Report 9937410 (Version 1)
Quarter: 2014Q1

REPORT INFORMATION
  Report Type: Spontaneous
  Country: US (occurrence: US)
  Receive Date: 20140303
  Receipt Date: 20140303
  Transmission Date: 20141002
  Serious: No
  Sender: FDA-Public Use
  Company Number: US-009507513-1402USA011369

PATIENT
  Age: 7 Year
  Sex: Female

DRUGS (4)
  1. MONTELUKAST SODIUM [Suspect]
     Indication: HYPERSENSITIVITY
     Dosage: UNK
     Route: 048
     Dates: start: 2011, end: 201308
  2. MONTELUKAST SODIUM [Suspect]
     Indication: ASTHMA
  3. MONTELUKAST SODIUM [Suspect]
     Indication: HYPERSENSITIVITY
     Dosage: UNK, QD
     Route: 048
     Dates: start: 201308
  4. MONTELUKAST SODIUM [Suspect]
     Indication: ASTHMA

REACTIONS (3)
  - Sinus tachycardia [Unknown]
  - Cardiac discomfort [Unknown]
  - Palpitations [Unknown]
